FAERS Safety Report 23580791 (Version 1)
Quarter: 2024Q1

REPORT INFORMATION
  Report Type: Spontaneous
  Country: US (occurrence: None)
  Receive Date: 20240229
  Receipt Date: 20240229
  Transmission Date: 20240410
  Serious: Yes (Hospitalization, Other)
  Sender: FDA-Public Use
  Company Number: 2024A044178

PATIENT

DRUGS (1)
  1. FARXIGA [Suspect]
     Active Substance: DAPAGLIFLOZIN PROPANEDIOL
     Dosage: TAKING FOR ONLY A MONTH AND A HALF 10.0MG UNKNOWN
     Route: 048

REACTIONS (5)
  - Near death experience [Unknown]
  - Heart rate decreased [Unknown]
  - Loss of consciousness [Unknown]
  - Wrong technique in product usage process [Unknown]
  - Intentional product misuse [Unknown]
